FAERS Safety Report 11422636 (Version 1)
Quarter: 2015Q3

REPORT INFORMATION
  Report Type: Spontaneous
  Country: US (occurrence: None)
  Receive Date: 20150826
  Receipt Date: 20150826
  Transmission Date: 20151125
  Serious: Yes (Disabling, Other)
  Sender: FDA-Public Use
  Company Number: None

PATIENT
  Age: 51 Year
  Sex: Male
  Weight: 88.45 kg

DRUGS (10)
  1. ULTRA OMEGA-3 [Concomitant]
  2. LACTATE [Concomitant]
  3. COENZYME [Concomitant]
     Active Substance: UBIDECARENONE
  4. MANGANESE [Concomitant]
     Active Substance: MANGANESE\MANGANESE CHLORIDE
  5. CIPROFLOXACIN 250MG [Suspect]
     Active Substance: CIPROFLOXACIN
     Indication: PROSTATITIS
     Route: 048
     Dates: start: 20150814, end: 20150815
  6. CITRATE [Concomitant]
     Active Substance: CITRIC ACID MONOHYDRATE
  7. MULTI VITAMIN [Concomitant]
     Active Substance: VITAMINS
  8. MAGNEIUM ASPARATE [Concomitant]
  9. MILK THISTLE [Concomitant]
     Active Substance: MILK THISTLE
  10. VIT D-3 [Concomitant]

REACTIONS (5)
  - Feeling abnormal [None]
  - Arthralgia [None]
  - Melaena [None]
  - Tendon pain [None]
  - Gastric disorder [None]

NARRATIVE: CASE EVENT DATE: 20150815
